FAERS Safety Report 8860432 (Version 2)
Quarter: 2012Q4

REPORT INFORMATION
  Report Type: 
  Country: JP (occurrence: JP)
  Receive Date: 20121025
  Receipt Date: 20121126
  Transmission Date: 20130627
  Serious: No
  Sender: FDA-Public Use
  Company Number: PHHY2012JP079997

PATIENT
  Age: 83 Year
  Sex: Male

DRUGS (3)
  1. EXJADE [Suspect]
     Indication: IRON OVERLOAD
     Dosage: 1 DF, daily
     Route: 048
     Dates: start: 20120904
  2. EXJADE [Suspect]
     Dosage: 2 DF, daily
     Route: 048
  3. VITAMINS NOS [Concomitant]

REACTIONS (2)
  - Haematuria [Recovered/Resolved]
  - Chromaturia [Recovered/Resolved]
